FAERS Safety Report 12919538 (Version 1)
Quarter: 2016Q4

REPORT INFORMATION
  Report Type: Spontaneous
  Country: US (occurrence: DE)
  Receive Date: 20161108
  Receipt Date: 20161108
  Transmission Date: 20170207
  Serious: Yes (Other)
  Sender: FDA-Public Use
  Company Number: US-AUROBINDO-AUR-APL-2016-13881

PATIENT
  Age: 31 Year
  Sex: Female
  Weight: 122 kg

DRUGS (2)
  1. FOLIO FORTE [Concomitant]
     Active Substance: FOLIC ACID\VITAMINS
     Indication: PROPHYLAXIS OF NEURAL TUBE DEFECT
     Dosage: 0.8 MG, ONCE A DAY
     Route: 048
     Dates: start: 20151014, end: 20160711
  2. LAMOTRIGINE. [Suspect]
     Active Substance: LAMOTRIGINE
     Indication: EPILEPSY
     Dosage: UNK
     Route: 048
     Dates: start: 20151014, end: 20160711

REACTIONS (3)
  - Generalised tonic-clonic seizure [Unknown]
  - Oligohydramnios [Recovered/Resolved]
  - Exposure during pregnancy [Unknown]
